FAERS Safety Report 13465864 (Version 1)
Quarter: 2017Q2

REPORT INFORMATION
  Report Type: Spontaneous
  Country: US (occurrence: US)
  Receive Date: 20170420
  Receipt Date: 20170420
  Transmission Date: 20170830
  Serious: Yes (Other)
  Sender: FDA-Public Use
  Company Number: None

PATIENT
  Age: 67 Year
  Sex: Female
  Weight: 60.75 kg

DRUGS (8)
  1. ESTRADIOL. [Concomitant]
     Active Substance: ESTRADIOL
  2. VIBERZI [Suspect]
     Active Substance: ELUXADOLINE
     Indication: IRRITABLE BOWEL SYNDROME
     Dosage: ?          QUANTITY:1 TABLET(S);OTHER FREQUENCY:ONCE OR TWICE WEEK;?
     Route: 048
     Dates: start: 20161130, end: 20170411
  3. DONNATAL [Concomitant]
     Active Substance: ATROPINE SULFATE\HYOSCYAMINE SULFATE\PHENOBARBITAL\SCOPOLAMINE HYDROBROMIDE
  4. VIBERZI [Suspect]
     Active Substance: ELUXADOLINE
     Indication: DIVERTICULUM
     Dosage: ?          QUANTITY:1 TABLET(S);OTHER FREQUENCY:ONCE OR TWICE WEEK;?
     Route: 048
     Dates: start: 20161130, end: 20170411
  5. MEDROXYPROGESTERONE [Concomitant]
     Active Substance: MEDROXYPROGESTERONE
  6. NASACORT [Concomitant]
     Active Substance: TRIAMCINOLONE ACETONIDE
  7. VITAMIN D [Concomitant]
     Active Substance: CHOLECALCIFEROL
  8. DORYX [Concomitant]
     Active Substance: DOXYCYCLINE HYCLATE

REACTIONS (8)
  - Malaise [None]
  - Abdominal pain [None]
  - Tremor [None]
  - Vomiting [None]
  - Asthenia [None]
  - Hyperhidrosis [None]
  - Dizziness [None]
  - Contraindicated product administered [None]

NARRATIVE: CASE EVENT DATE: 20170411
